FAERS Safety Report 7017800-4 (Version None)
Quarter: 2010Q3

REPORT INFORMATION
  Report Type: 
  Country: None (occurrence: None)
  Receive Date: 20100927
  Receipt Date: 20100927
  Transmission Date: 20110219
  Serious: Yes (Other)
  Sender: FDA-Public Use
  Company Number: None

PATIENT

DRUGS (7)
  1. AVASTIN [Suspect]
     Indication: NON-SMALL CELL LUNG CANCER METASTATIC
     Dosage: 946MG; Q3WKS; IV
     Route: 042
     Dates: start: 20100414
  2. AVASTIN [Suspect]
     Indication: NON-SMALL CELL LUNG CANCER METASTATIC
     Dosage: 946MG; Q3WKS; IV
     Route: 042
     Dates: start: 20100505
  3. AVASTIN [Suspect]
     Indication: NON-SMALL CELL LUNG CANCER METASTATIC
     Dosage: 946MG; Q3WKS; IV
     Route: 042
     Dates: start: 20100527
  4. AVASTIN [Suspect]
     Dosage: 946MG; Q3WKS; IV
     Route: 042
     Dates: start: 20100623
  5. AVASTIN [Suspect]
     Dosage: 946MG; Q3WKS; IV
     Route: 042
     Dates: start: 20100804
  6. AVASTIN [Suspect]
     Dosage: 946MG; Q3WKS; IV
     Route: 042
     Dates: start: 20100901
  7. AVASTIN [Suspect]
     Dosage: 946MG; Q3WKS; IV
     Route: 042
     Dates: start: 20100922

REACTIONS (3)
  - CHILLS [None]
  - INFUSION SITE REACTION [None]
  - PRURITUS [None]
